FAERS Safety Report 22517345 (Version 1)
Quarter: 2023Q2

REPORT INFORMATION
  Report Type: Spontaneous
  Country: US (occurrence: US)
  Receive Date: 20230603
  Receipt Date: 20230603
  Transmission Date: 20230721
  Serious: Yes (Other)
  Sender: FDA-Public Use
  Company Number: US-Accord-360690

PATIENT
  Age: 77 Year
  Sex: Female
  Weight: 62.6 kg

DRUGS (1)
  1. LEVOTHYROXINE [Suspect]
     Active Substance: LEVOTHYROXINE
     Indication: Hypothyroidism
     Dosage: STRENGTH: 75MCG
     Route: 048
     Dates: start: 20230305

REACTIONS (4)
  - Arrhythmia [Not Recovered/Not Resolved]
  - Product substitution issue [Unknown]
  - Brain fog [Not Recovered/Not Resolved]
  - Condition aggravated [Not Recovered/Not Resolved]

NARRATIVE: CASE EVENT DATE: 20230521
